FAERS Safety Report 9831070 (Version 1)
Quarter: 2014Q1

REPORT INFORMATION
  Report Type: Spontaneous
  Country: US (occurrence: US)
  Receive Date: 20140120
  Receipt Date: 20140120
  Transmission Date: 20141002
  Serious: Yes (Hospitalization, Other)
  Sender: FDA-Public Use
  Company Number: US-BRISTOL-MYERS SQUIBB COMPANY-19990951

PATIENT
  Age: 77 Year
  Sex: Female

DRUGS (8)
  1. REYATAZ [Suspect]
     Dates: start: 201101
  2. VIDEX [Suspect]
  3. NORVIR [Suspect]
  4. TRUVADA [Suspect]
  5. EMTRIVA [Suspect]
  6. GLUCOTROL [Concomitant]
  7. GLUCOPHAGE [Concomitant]
  8. CRESTOR [Concomitant]
     Indication: HYPERLIPIDAEMIA

REACTIONS (2)
  - Renal failure acute [Unknown]
  - Renal failure [Unknown]
